FAERS Safety Report 17590278 (Version 1)
Quarter: 2020Q1

REPORT INFORMATION
  Report Type: Spontaneous
  Country: US (occurrence: US)
  Receive Date: 20200326
  Receipt Date: 20200326
  Transmission Date: 20200409
  Serious: No
  Sender: FDA-Public Use
  Company Number: None

PATIENT
  Age: 8 Year
  Sex: Male

DRUGS (1)
  1. DELSYM [Suspect]
     Active Substance: DEXTROMETHORPHAN
     Indication: COUGH
     Route: 048

REACTIONS (4)
  - Circumstance or information capable of leading to medication error [None]
  - Incorrect dose administered [None]
  - Overdose [None]
  - Device issue [None]

NARRATIVE: CASE EVENT DATE: 20200321
